FAERS Safety Report 24318399 (Version 1)
Quarter: 2024Q3

REPORT INFORMATION
  Report Type: Spontaneous
  Country: US (occurrence: US)
  Receive Date: 20240913
  Receipt Date: 20240913
  Transmission Date: 20241017
  Serious: Yes (Death, Other)
  Sender: SANDOZ
  Company Number: US-SANDOZ-SDZ2024US079744

PATIENT
  Age: 24 Year
  Sex: Female

DRUGS (6)
  1. ALEMTUZUMAB [Suspect]
     Active Substance: ALEMTUZUMAB
     Indication: Natural killer-cell leukaemia
     Route: 065
  2. ATOVAQUONE [Suspect]
     Active Substance: ATOVAQUONE
     Indication: Antifungal prophylaxis
     Dosage: 1500 MG, QD
     Route: 048
  3. BORTEZOMIB [Suspect]
     Active Substance: BORTEZOMIB
     Indication: Natural killer-cell leukaemia
     Dosage: 0.7 MG/M2 (ON DAYS ONE, FOUR, EIGHT, 11)
     Route: 042
  4. BORTEZOMIB [Suspect]
     Active Substance: BORTEZOMIB
     Indication: Epstein-Barr virus infection
  5. DECADRON (DEXAMETHASONE SODIUM PHOSPHATE) [Suspect]
     Active Substance: DEXAMETHASONE SODIUM PHOSPHATE
     Indication: Haemophagocytic lymphohistiocytosis
     Dosage: 20 MG, QD
     Route: 048
  6. GANCICLOVIR [Suspect]
     Active Substance: GANCICLOVIR
     Indication: Product used for unknown indication
     Dosage: 5 MG/KG, BID
     Route: 042

REACTIONS (9)
  - Alpha haemolytic streptococcal infection [Fatal]
  - Encephalopathy [Fatal]
  - Abdominal compartment syndrome [Fatal]
  - Acute respiratory failure [Fatal]
  - Escherichia infection [Fatal]
  - Candida infection [Fatal]
  - Soft tissue infection [Fatal]
  - Bacteraemia [Fatal]
  - Rebound effect [Unknown]
